FAERS Safety Report 9452651 (Version 1)
Quarter: 2013Q3

REPORT INFORMATION
  Report Type: Spontaneous
  Country: US (occurrence: None)
  Receive Date: 20130807
  Receipt Date: 20130807
  Transmission Date: 20140515
  Serious: No
  Sender: FDA-Public Use
  Company Number: 2013P1013824

PATIENT
  Age: 46 Year
  Sex: Female
  Weight: 90.72 kg

DRUGS (1)
  1. LAMOTRIGINE [Suspect]
     Indication: DEPRESSION
     Route: 048
     Dates: start: 201211, end: 201306

REACTIONS (19)
  - Amnesia [None]
  - Amnesia [None]
  - Myalgia [None]
  - Blister [None]
  - Fall [None]
  - Brain injury [None]
  - Off label use [None]
  - Disturbance in attention [None]
  - Suicidal ideation [None]
  - Poor quality sleep [None]
  - Disorientation [None]
  - Balance disorder [None]
  - Fall [None]
  - Thinking abnormal [None]
  - Flushing [None]
  - Paraesthesia [None]
  - Hyperaesthesia [None]
  - Violence-related symptom [None]
  - Skin disorder [None]
